FAERS Safety Report 8121000-4 (Version None)
Quarter: 2012Q1

REPORT INFORMATION
  Report Type: 
  Country: None (occurrence: None)
  Receive Date: 20120208
  Receipt Date: 20120203
  Transmission Date: 20120608
  Serious: Yes (Hospitalization)
  Sender: FDA-Public Use
  Company Number: US-BAYER-2012-011806

PATIENT
  Age: 26 Year
  Sex: Female
  Weight: 82.993 kg

DRUGS (3)
  1. LEVAQUIN [Concomitant]
     Dosage: 500 MG, UNK
     Route: 048
     Dates: start: 20070116
  2. YASMIN [Suspect]
     Indication: PRODUCT USED FOR UNKNOWN INDICATION
  3. INDOMETHACIN [Concomitant]
     Dosage: 50 MG, UNK
     Route: 048
     Dates: start: 20070113

REACTIONS (5)
  - PULMONARY EMBOLISM [None]
  - PAINFUL RESPIRATION [None]
  - HAEMOPTYSIS [None]
  - DYSPNOEA EXERTIONAL [None]
  - CHEST PAIN [None]
